FAERS Safety Report 12964837 (Version 1)
Quarter: 2016Q4

REPORT INFORMATION
  Report Type: Spontaneous
  Country: US (occurrence: US)
  Receive Date: 20161122
  Receipt Date: 20161122
  Transmission Date: 20170207
  Serious: No
  Sender: FDA-Public Use
  Company Number: US-009507513-1611USA004338

PATIENT
  Age: 19 Year
  Sex: Female
  Weight: 75.28 kg

DRUGS (1)
  1. NEXPLANON [Suspect]
     Active Substance: ETONOGESTREL
     Indication: CONTRACEPTION
     Dosage: 1 DF, 1 ROD/3 YEARS
     Route: 059
     Dates: start: 201602, end: 20161108

REACTIONS (3)
  - Implant site pain [Recovered/Resolved]
  - Product quality issue [Unknown]
  - Device kink [Unknown]

NARRATIVE: CASE EVENT DATE: 201609
